FAERS Safety Report 6551131-1 (Version None)
Quarter: 2010Q1

REPORT INFORMATION
  Report Type: 
  Country: None (occurrence: None)
  Receive Date: 20100121
  Receipt Date: 20100108
  Transmission Date: 20100710
  Serious: Yes (Death)
  Sender: FDA-Public Use
  Company Number: 100114-0000044

PATIENT
  Age: 50 Year
  Sex: Female

DRUGS (11)
  1. CLORAZEPATE DIPOTASSIUM [Suspect]
     Indication: INSOMNIA
     Dosage: 15 MG; ; PO
     Route: 048
  2. DIAZEPAM [Concomitant]
  3. ETIZOLAM [Concomitant]
  4. MIANSERIN HYDROCHLORIDE [Concomitant]
  5. NITRAZEPAM [Concomitant]
  6. TRIAZOLAM [Concomitant]
  7. ZOLPIDEM TARTRATE [Concomitant]
  8. PENTOBARBITAL CALCIUM [Concomitant]
  9. PAROXETINE HYDROCHLORIDE [Concomitant]
  10. BROMAZEPAM [Concomitant]
  11. VEGETAMIN A [Concomitant]

REACTIONS (1)
  - DRUG TOXICITY [None]
